FAERS Safety Report 13518793 (Version 1)
Quarter: 2017Q2

REPORT INFORMATION
  Report Type: Spontaneous
  Country: US (occurrence: US)
  Receive Date: 20170505
  Receipt Date: 20170505
  Transmission Date: 20170830
  Serious: Yes (Other)
  Sender: FDA-Public Use
  Company Number: US-BAYER-2017-086105

PATIENT
  Age: 41 Year
  Sex: Female

DRUGS (1)
  1. MIRENA [Suspect]
     Active Substance: LEVONORGESTREL
     Dosage: 20 MCG/24HR, CONT
     Route: 015
     Dates: start: 201005, end: 20131111

REACTIONS (12)
  - Back pain [None]
  - Headache [None]
  - Tinnitus [None]
  - Dizziness [None]
  - Nausea [None]
  - Musculoskeletal pain [None]
  - Paraesthesia [None]
  - Visual impairment [None]
  - Vision blurred [None]
  - Neck pain [None]
  - Idiopathic intracranial hypertension [None]
  - Amnesia [None]

NARRATIVE: CASE EVENT DATE: 201311
